FAERS Safety Report 24632375 (Version 2)
Quarter: 2024Q4

REPORT INFORMATION
  Report Type: Spontaneous
  Country: US (occurrence: US)
  Receive Date: 20241118
  Receipt Date: 20241205
  Transmission Date: 20250115
  Serious: No
  Sender: IDORSIA PHARMACEUTICALS
  Company Number: US-IDORSIA-008664-2024-US

PATIENT
  Age: 64 Year
  Sex: Female

DRUGS (5)
  1. QUVIVIQ [Suspect]
     Active Substance: DARIDOREXANT
     Indication: Insomnia
     Dosage: 50 MG, QD
     Route: 048
  2. QUVIVIQ [Suspect]
     Active Substance: DARIDOREXANT
     Dosage: 50 MG, QD
     Route: 048
  3. QUVIVIQ [Suspect]
     Active Substance: DARIDOREXANT
     Dosage: 25 MG
     Route: 048
  4. QUVIVIQ [Suspect]
     Active Substance: DARIDOREXANT
     Dosage: HALF OF 50 MG
     Route: 048
  5. QUVIVIQ [Suspect]
     Active Substance: DARIDOREXANT
     Dosage: 60 TO 70 PERCENT OF 50 MG
     Route: 048

REACTIONS (9)
  - Poor quality sleep [Recovered/Resolved]
  - COVID-19 [Recovered/Resolved]
  - Abnormal dreams [Not Recovered/Not Resolved]
  - Wrong technique in product usage process [Recovered/Resolved]
  - Product packaging difficult to open [Unknown]
  - Product measured potency issue [Unknown]
  - Product use issue [Recovered/Resolved]
  - Somnolence [Unknown]
  - Drug ineffective [Recovered/Resolved]

NARRATIVE: CASE EVENT DATE: 20240628
